FAERS Safety Report 12490804 (Version 1)
Quarter: 2016Q2

REPORT INFORMATION
  Report Type: Spontaneous
  Country: US (occurrence: US)
  Receive Date: 20160622
  Receipt Date: 20160622
  Transmission Date: 20160815
  Serious: Yes (Other)
  Sender: FDA-Public Use
  Company Number: US-ROCHE-1780084

PATIENT
  Sex: Female

DRUGS (11)
  1. METHOTREXATE [Concomitant]
     Active Substance: METHOTREXATE
     Indication: RHEUMATOID ARTHRITIS
  2. PLAQUENIL [Concomitant]
     Active Substance: HYDROXYCHLOROQUINE SULFATE
     Indication: RHEUMATOID ARTHRITIS
  3. NORTRIPTYLINE [Concomitant]
     Active Substance: NORTRIPTYLINE
  4. RITUXAN [Suspect]
     Active Substance: RITUXIMAB
     Indication: RHEUMATOID ARTHRITIS
     Route: 042
     Dates: start: 20160509, end: 20160509
  5. LORTAB (UNITED STATES) [Concomitant]
     Indication: RHEUMATOID ARTHRITIS
     Dosage: PRN
     Route: 065
  6. MAGNESIUM OXIDE. [Concomitant]
     Active Substance: MAGNESIUM OXIDE
  7. VENLAFAXINE [Concomitant]
     Active Substance: VENLAFAXINE HYDROCHLORIDE
     Indication: RHEUMATOID ARTHRITIS
  8. ATENOLOL. [Concomitant]
     Active Substance: ATENOLOL
     Indication: HYPERTENSION
  9. FOLIC ACID. [Concomitant]
     Active Substance: FOLIC ACID
     Dosage: COUNTER THE METHOTREXATE
     Route: 065
  10. ZANTAC [Concomitant]
     Active Substance: RANITIDINE HYDROCHLORIDE
  11. PREDNISONE. [Concomitant]
     Active Substance: PREDNISONE
     Indication: RHEUMATOID ARTHRITIS
     Dosage: PRN
     Route: 065

REACTIONS (8)
  - Ear congestion [Recovered/Resolved]
  - Middle ear effusion [Recovered/Resolved]
  - Supraventricular extrasystoles [Recovering/Resolving]
  - Loss of consciousness [Recovered/Resolved]
  - Arrhythmia [Not Recovered/Not Resolved]
  - Ventricular extrasystoles [Recovering/Resolving]
  - Orthostatic hypotension [Recovered/Resolved]
  - Infusion related reaction [Recovering/Resolving]
